FAERS Safety Report 6317889-1 (Version None)
Quarter: 2009Q3

REPORT INFORMATION
  Report Type: 
  Country: None (occurrence: None)
  Receive Date: 20090821
  Receipt Date: 20090817
  Transmission Date: 20100115
  Serious: Yes (Life-Threatening, Hospitalization, Other)
  Sender: FDA-Public Use
  Company Number: FR-CELGENEUS-056-21880-09081166

PATIENT
  Sex: Female
  Weight: 53 kg

DRUGS (8)
  1. REVLIMID [Suspect]
     Route: 048
     Dates: start: 20090814, end: 20090817
  2. DAUNORUBICIN HCL [Suspect]
     Route: 051
     Dates: start: 20090814, end: 20090817
  3. CYTARABINE [Suspect]
     Route: 051
     Dates: start: 20090814
  4. CO-APROVEL [Suspect]
     Indication: HYPERTENSION
     Route: 048
  5. PLITICAN [Suspect]
     Indication: NAUSEA
     Route: 051
     Dates: start: 20090815, end: 20090817
  6. LASIX [Suspect]
     Indication: DRUG USE FOR UNKNOWN INDICATION
     Route: 051
     Dates: start: 20090816, end: 20090816
  7. LARGACTIL [Suspect]
     Indication: NAUSEA
     Route: 051
     Dates: start: 20090816, end: 20090817
  8. MOTYLIO [Suspect]
     Indication: NAUSEA
     Route: 048
     Dates: start: 20090815, end: 20090817

REACTIONS (1)
  - HYPONATRAEMIA [None]
